FAERS Safety Report 7674296-7 (Version None)
Quarter: 2011Q3

REPORT INFORMATION
  Report Type: 
  Country: None (occurrence: None)
  Receive Date: 20110810
  Receipt Date: 20101013
  Transmission Date: 20111222
  Serious: No
  Sender: FDA-Public Use
  Company Number: US-BAUSCH-2010BL005780

PATIENT
  Age: 69 Year
  Sex: Female

DRUGS (3)
  1. CROMOLYN SODIUM [Suspect]
     Indication: CHRONIC SINUSITIS
     Route: 045
     Dates: start: 20100101, end: 20101001
  2. CROMOLYN SODIUM [Suspect]
     Indication: UPPER-AIRWAY COUGH SYNDROME
     Route: 045
     Dates: start: 20100101, end: 20101001
  3. CROMOLYN SODIUM [Suspect]
     Indication: ASTHMA
     Route: 045
     Dates: start: 20100101, end: 20101001

REACTIONS (1)
  - RASH PRURITIC [None]
